FAERS Safety Report 7509348-5 (Version None)
Quarter: 2011Q2

REPORT INFORMATION
  Report Type: 
  Country: None (occurrence: None)
  Receive Date: 20110527
  Receipt Date: 20110523
  Transmission Date: 20111010
  Serious: Yes (Other)
  Sender: FDA-Public Use
  Company Number: US-ROCHE-778994

PATIENT
  Sex: Female

DRUGS (1)
  1. BONIVA [Suspect]
     Dosage: TOOK ONCE
     Route: 065
     Dates: start: 20110101

REACTIONS (2)
  - GASTRIC OPERATION [None]
  - CHEST PAIN [None]
